FAERS Safety Report 8201313-8 (Version None)
Quarter: 2012Q1

REPORT INFORMATION
  Report Type: 
  Country: None (occurrence: None)
  Receive Date: 20120312
  Receipt Date: 20120308
  Transmission Date: 20120608
  Serious: Yes (Hospitalization, Other)
  Sender: FDA-Public Use
  Company Number: PHEH2008US03185

PATIENT
  Sex: Female

DRUGS (58)
  1. PROCRIT                            /00909301/ [Concomitant]
     Dosage: UNK
  2. FENOFIBRATE [Concomitant]
  3. SPIRIVA [Concomitant]
  4. DARVOCET-N 50 [Concomitant]
  5. HYDROCODONE BITARTRATE [Concomitant]
     Indication: PAIN
     Dosage: 7.5 MG, Q6H
  6. PRAVACHOL [Concomitant]
  7. CALCIUM [Concomitant]
     Dosage: 600 MG, BID
  8. KLOR-CON [Concomitant]
  9. GABAPENTIN [Concomitant]
  10. FLONASE [Concomitant]
  11. METHYLPREDNISOLONE [Concomitant]
  12. ZANTAC [Concomitant]
  13. CALCIUM WITH VITAMIN D [Concomitant]
  14. ZOMETA [Suspect]
     Indication: METASTASES TO BONE
     Dosage: 4 MG, UNK
     Dates: start: 20041001, end: 20090501
  15. TAXOTERE [Concomitant]
  16. ARANESP [Concomitant]
  17. NEULASTA [Concomitant]
     Dosage: 6 MG, UNK
     Route: 058
  18. ARIMIDEX [Concomitant]
  19. WELLBUTRIN SR [Concomitant]
  20. CELEXA [Concomitant]
  21. ACETAMINOPHEN [Concomitant]
  22. PAXIL [Concomitant]
  23. PRAVASTATIN [Concomitant]
  24. CHANTIX [Concomitant]
  25. ZYPREXA [Concomitant]
  26. TOBREX [Concomitant]
  27. DESOXYN [Concomitant]
     Dosage: UNK
  28. OXYCONTIN [Concomitant]
  29. MORPHINE SULFATE [Concomitant]
  30. HERCEPTIN [Concomitant]
  31. ALBUTEROL [Concomitant]
  32. ADVAIR DISKUS 100/50 [Concomitant]
     Dosage: UNK
  33. OXYMORPHONE [Concomitant]
  34. BENADRYL ^ACHE^ [Concomitant]
  35. DECADRON [Concomitant]
  36. NEUPOGEN [Concomitant]
  37. TAMOXIFEN CITRATE [Concomitant]
  38. OXYCODONE HCL [Concomitant]
     Dosage: UNK
  39. MORPHINE [Concomitant]
     Dosage: UNK
  40. ATIVAN [Concomitant]
     Dosage: UNK
  41. TRASTUZUMAB [Concomitant]
  42. ARIMIDEX [Concomitant]
  43. TAXOL [Concomitant]
  44. MULTIVITAMIN ^LAPPE^ [Concomitant]
  45. COMPAZINE [Concomitant]
  46. DEXAMETHASONE [Concomitant]
  47. AMITRIPTYLINE HCL [Concomitant]
     Dosage: 25 MG, QHS
  48. NOLVADEX [Concomitant]
     Dosage: 20 MG, QD
  49. REMERON [Concomitant]
  50. SODIUM CHLORIDE [Concomitant]
  51. CARBOPLATIN [Concomitant]
  52. FERROUS GLUCONATE [Concomitant]
  53. SKELAXIN [Concomitant]
  54. RITALIN - SLOW RELEASE [Concomitant]
     Indication: SLEEP APNOEA SYNDROME
     Dosage: 20 MG, QD
     Dates: start: 20100118
  55. DEXEDRINE ^MEDEVA^ [Concomitant]
     Dosage: 20 MG/ QD
  56. PAMELOR [Concomitant]
     Dosage: 25 MG, QHS
  57. DALMANE [Concomitant]
     Dosage: 30 MG, QHS
  58. ORAL CONTRACEPTIVE NOS [Concomitant]

REACTIONS (100)
  - VOMITING [None]
  - DEHYDRATION [None]
  - MENTAL STATUS CHANGES [None]
  - HEMIPLEGIA [None]
  - RADICULOPATHY [None]
  - EMPHYSEMA [None]
  - SUICIDAL IDEATION [None]
  - NEUROPATHY PERIPHERAL [None]
  - BONE DISORDER [None]
  - INJURY [None]
  - ANXIETY [None]
  - PHYSICAL DISABILITY [None]
  - DYSPNOEA [None]
  - MITRAL VALVE INCOMPETENCE [None]
  - LUNG NEOPLASM [None]
  - OESOPHAGITIS [None]
  - RESPIRATORY DEPRESSION [None]
  - CLOSTRIDIUM DIFFICILE COLITIS [None]
  - MOOD SWINGS [None]
  - RASH ERYTHEMATOUS [None]
  - HALLUCINATION [None]
  - FRACTURE [None]
  - TRISMUS [None]
  - PAIN IN JAW [None]
  - WEIGHT INCREASED [None]
  - DEPRESSION [None]
  - HIP FRACTURE [None]
  - SINUSITIS [None]
  - OSTEOARTHRITIS [None]
  - ABDOMINAL PAIN UPPER [None]
  - HIATUS HERNIA [None]
  - INTERVERTEBRAL DISC DEGENERATION [None]
  - DIARRHOEA [None]
  - MUSCULOSKELETAL PAIN [None]
  - HUMAN PAPILLOMA VIRUS TEST POSITIVE [None]
  - PARAESTHESIA [None]
  - NEOPLASM MALIGNANT [None]
  - DERMATITIS CONTACT [None]
  - OSTEONECROSIS OF JAW [None]
  - SALIVARY GLAND ENLARGEMENT [None]
  - WALKING AID USER [None]
  - FATIGUE [None]
  - GASTROOESOPHAGEAL REFLUX DISEASE [None]
  - MOOD DISORDER DUE TO A GENERAL MEDICAL CONDITION [None]
  - TOOTHACHE [None]
  - PANCYTOPENIA [None]
  - NEUTROPENIA [None]
  - GALLBLADDER DISORDER [None]
  - INTERVERTEBRAL DISC PROTRUSION [None]
  - NEURALGIA [None]
  - DIZZINESS [None]
  - RENAL PAIN [None]
  - SOMNOLENCE [None]
  - ANAEMIA [None]
  - DELUSION [None]
  - IMPLANT SITE INFECTION [None]
  - VIITH NERVE PARALYSIS [None]
  - INFECTION [None]
  - MEMORY IMPAIRMENT [None]
  - HORDEOLUM [None]
  - HYPOPHAGIA [None]
  - EXOSTOSIS [None]
  - CERVICAL DYSPLASIA [None]
  - MESENTERIC VASCULAR INSUFFICIENCY [None]
  - INTERVERTEBRAL DISC DISORDER [None]
  - DYSTONIA [None]
  - BONE LOSS [None]
  - EMOTIONAL DISTRESS [None]
  - RADIATION ASSOCIATED PAIN [None]
  - SLEEP APNOEA SYNDROME [None]
  - SPINAL COLUMN STENOSIS [None]
  - PAIN [None]
  - OEDEMA [None]
  - MALAISE [None]
  - HYPOAESTHESIA [None]
  - CERVIX CARCINOMA [None]
  - DYSARTHRIA [None]
  - MUSCLE SPASMS [None]
  - JAW FRACTURE [None]
  - NEURITIS [None]
  - COLITIS [None]
  - HEPATIC ENZYME INCREASED [None]
  - SWELLING FACE [None]
  - DYSKINESIA [None]
  - SPINAL OSTEOARTHRITIS [None]
  - MYOPATHY [None]
  - PAIN IN EXTREMITY [None]
  - HOT FLUSH [None]
  - RADICULAR PAIN [None]
  - FACIAL PAIN [None]
  - SCAR [None]
  - GAIT DISTURBANCE [None]
  - PYREXIA [None]
  - SACROILIITIS [None]
  - BACK PAIN [None]
  - ARTHRALGIA [None]
  - OSTEOMYELITIS [None]
  - SEDATION [None]
  - HYPERCHOLESTEROLAEMIA [None]
  - DECREASED APPETITE [None]
